FAERS Safety Report 9063936 (Version 2)
Quarter: 2013Q1

REPORT INFORMATION
  Report Type: Spontaneous
  Country: US (occurrence: US)
  Receive Date: 20130213
  Receipt Date: 20130321
  Transmission Date: 20140127
  Serious: No
  Sender: FDA-Public Use
  Company Number: US-TEVA-385467USA

PATIENT
  Age: 10 Month
  Sex: Male

DRUGS (1)
  1. PROGLYCEM [Suspect]
     Route: 048
     Dates: start: 20121207

REACTIONS (1)
  - Hair growth abnormal [Not Recovered/Not Resolved]
